FAERS Safety Report 17139840 (Version 1)
Quarter: 2019Q4

REPORT INFORMATION
  Report Type: Spontaneous
  Country: CZ (occurrence: CZ)
  Receive Date: 20191211
  Receipt Date: 20191211
  Transmission Date: 20200122
  Serious: Yes (Death, Life-Threatening, Hospitalization, Disabling, Other)
  Sender: FDA-Public Use
  Company Number: CZ-ACCORD-164460

PATIENT
  Age: 73 Year
  Sex: Female
  Weight: 70 kg

DRUGS (1)
  1. CAPECITABINE ACCORD [Suspect]
     Active Substance: CAPECITABINE
     Indication: RECTAL CANCER
     Dosage: 3-0-2
     Route: 048
     Dates: start: 20191029, end: 20191111

REACTIONS (7)
  - Neutropenia [Fatal]
  - Mucosal toxicity [Fatal]
  - Haematotoxicity [Fatal]
  - Leukopenia [Fatal]
  - Diarrhoea [Fatal]
  - Diarrhoea haemorrhagic [Fatal]
  - Colitis [Fatal]

NARRATIVE: CASE EVENT DATE: 20191116
